FAERS Safety Report 16760487 (Version 2)
Quarter: 2020Q4

REPORT INFORMATION
  Report Type: Spontaneous
  Country: FR (occurrence: FR)
  Receive Date: 20190830
  Receipt Date: 20201006
  Transmission Date: 20210113
  Serious: Yes (Other)
  Sender: FDA-Public Use
  Company Number: PHHY2019FR200321

PATIENT
  Age: 24 Year
  Sex: Female

DRUGS (1)
  1. RITALINE [Suspect]
     Active Substance: METHYLPHENIDATE HYDROCHLORIDE
     Indication: ATTENTION DEFICIT HYPERACTIVITY DISORDER
     Dosage: 2 DF, Q2H (EVERY TWO HOURS)
     Route: 065
     Dates: start: 2007

REACTIONS (5)
  - Tachycardia [Recovering/Resolving]
  - Ocular hypertension [Recovering/Resolving]
  - Product physical issue [Unknown]
  - Off label use [Unknown]
  - Dyspepsia [Recovering/Resolving]
